FAERS Safety Report 14530138 (Version 1)
Quarter: 2018Q1

REPORT INFORMATION
  Report Type: Spontaneous
  Country: RS (occurrence: RS)
  Receive Date: 20180214
  Receipt Date: 20180214
  Transmission Date: 20180509
  Serious: Yes (Other)
  Sender: FDA-Public Use
  Company Number: RS-SEPTODONT-201804484

PATIENT
  Sex: Female

DRUGS (1)
  1. SEPTANEST ADRENALINE 1/100.000 [Suspect]
     Active Substance: ARTICAINE HYDROCHLORIDE\EPINEPHRINE BITARTRATE
     Indication: DENTAL LOCAL ANAESTHESIA
     Dates: start: 20171201, end: 20171201

REACTIONS (3)
  - Abnormal sensation in eye [Recovered/Resolved]
  - Blindness transient [Recovered/Resolved]
  - Diplopia [Recovered/Resolved]

NARRATIVE: CASE EVENT DATE: 20171201
